FAERS Safety Report 25629499 (Version 3)
Quarter: 2025Q3

REPORT INFORMATION
  Report Type: Spontaneous
  Country: US (occurrence: US)
  Receive Date: 20250731
  Receipt Date: 20250911
  Transmission Date: 20251020
  Serious: No
  Sender: INCYTE
  Company Number: US-EVENT-003700

PATIENT
  Age: 63 Year

DRUGS (1)
  1. OPZELURA [Suspect]
     Active Substance: RUXOLITINIB PHOSPHATE
     Indication: Dermatitis atopic
     Dosage: 1.5 PERCENT, BID (APPLY A THIN LAYER TO AFFECTED AREA(S) ON LEGS TWICE DAILY AS DIRECTED)
     Route: 065

REACTIONS (2)
  - Product temperature excursion issue [Unknown]
  - Product dose omission issue [Unknown]
